FAERS Safety Report 9032015 (Version 1)
Quarter: 2013Q1

REPORT INFORMATION
  Report Type: Spontaneous
  Country: FR (occurrence: FR)
  Receive Date: 20130125
  Receipt Date: 20130125
  Transmission Date: 20140127
  Serious: Yes (Life-Threatening)
  Sender: FDA-Public Use
  Company Number: FR-PFIZER INC-2013027176

PATIENT
  Age: 52 Year
  Sex: Female

DRUGS (8)
  1. SOLU-MEDROL [Suspect]
     Dosage: 50 MG, DAILY
     Dates: start: 20121102
  2. NEORAL [Suspect]
     Dosage: 75 MG, 2X/DAY
     Route: 048
     Dates: start: 1992
  3. CELLCEPT [Suspect]
     Dosage: 1.5 MG, 2X/DAY
     Dates: start: 1992, end: 20121102
  4. SOLUPRED [Suspect]
     Dosage: 5MG PER DAY
     Route: 048
     Dates: start: 1992, end: 20121102
  5. ARTEX [Suspect]
     Dosage: 5 MG, 1X/DAY
     Route: 048
     Dates: start: 1992, end: 20121102
  6. LEVOTHYROX [Concomitant]
     Dosage: 25 UG, 1X/DAY
  7. SPECIAFOLDINE [Concomitant]
     Dosage: DAILY
  8. ZYLORIC [Concomitant]
     Dosage: 100 MG, 1X/DAY

REACTIONS (3)
  - B-cell lymphoma [Not Recovered/Not Resolved]
  - Lymphoproliferative disorder [Not Recovered/Not Resolved]
  - Lymphadenopathy [Not Recovered/Not Resolved]
